FAERS Safety Report 18744538 (Version 1)
Quarter: 2021Q1

REPORT INFORMATION
  Report Type: Spontaneous
  Country: US (occurrence: US)
  Receive Date: 20210115
  Receipt Date: 20210115
  Transmission Date: 20210419
  Serious: Yes (Other)
  Sender: FDA-Public Use
  Company Number: US-ROCHE-2749719

PATIENT
  Sex: Female

DRUGS (7)
  1. SYNTHROID [Concomitant]
     Active Substance: LEVOTHYROXINE SODIUM
     Dosage: 88 MCG
  2. METRONIDAZOLE. [Concomitant]
     Active Substance: METRONIDAZOLE
  3. LEVOCETIRIZINE [Concomitant]
     Active Substance: LEVOCETIRIZINE
  4. XOLAIR [Suspect]
     Active Substance: OMALIZUMAB
     Indication: ASTHMA
     Dosage: INJECT 300MG 2 PFS
     Route: 058
  5. XOLAIR [Suspect]
     Active Substance: OMALIZUMAB
  6. DOXYCYCLINE. [Concomitant]
     Active Substance: DOXYCYCLINE
  7. XOLAIR [Suspect]
     Active Substance: OMALIZUMAB

REACTIONS (1)
  - COVID-19 [Unknown]
